FAERS Safety Report 5812673-7 (Version None)
Quarter: 2008Q3

REPORT INFORMATION
  Report Type: 
  Country: None (occurrence: None)
  Receive Date: 20080714
  Receipt Date: 20080714
  Transmission Date: 20090109
  Serious: No
  Sender: FDA-Public Use
  Company Number: None

PATIENT
  Sex: Female

DRUGS (2)
  1. PROAIR HFA [Suspect]
     Indication: ASTHMA
     Dosage: TWO PUFFS  4 TIMES  PO
     Route: 048
     Dates: start: 20080701, end: 20080705
  2. PROAIR HFA [Suspect]
     Indication: ASTHMA
     Dosage: TWO PUFFS EVERY 3 HRS. PO
     Route: 048
     Dates: start: 20080705, end: 20080707

REACTIONS (2)
  - DRUG INEFFECTIVE [None]
  - THERAPEUTIC RESPONSE UNEXPECTED WITH DRUG SUBSTITUTION [None]
